FAERS Safety Report 11419439 (Version 3)
Quarter: 2017Q3

REPORT INFORMATION
  Report Type: Report from Study
  Country: IT (occurrence: IT)
  Receive Date: 20150826
  Receipt Date: 20170712
  Transmission Date: 20171127
  Serious: Yes (Other)
  Sender: FDA-Public Use
  Company Number: IT-SUN PHARMACEUTICAL INDUSTRIES LTD-2015R1-102115

PATIENT
  Age: 79 Year
  Sex: Female

DRUGS (4)
  1. CYCLOPHOSPHAMIDE. [Suspect]
     Active Substance: CYCLOPHOSPHAMIDE
     Indication: CASTLEMAN^S DISEASE
     Dosage: 750 MG/M2 ON DAY 1, EVERY 3 WEEKS FOR 6-8 CYCLES
     Route: 065
  2. VINCRISTINE [Suspect]
     Active Substance: VINCRISTINE
     Indication: CASTLEMAN^S DISEASE
     Dosage: 2 MG ON DAY1, EVERY 3 WEEKS FOR 6-8 CYCLES
     Route: 065
  3. PREDNISONE. [Suspect]
     Active Substance: PREDNISONE
     Indication: CASTLEMAN^S DISEASE
     Dosage: 40 MG/M2, DAILY ON DAY 1 TO 5, EVERY 3 WEEKS FOR 6-8 CYCLES
     Route: 048
  4. RITUXIMAB. [Suspect]
     Active Substance: RITUXIMAB
     Indication: CASTLEMAN^S DISEASE
     Dosage: 375 MG/M^2 ON DAY 8 OF THE FIRST CYCLE AND THEN ON DAY 1 OF EACH CYCLE, EVERY 3 WEEKS FOR 6-8 CYCLES
     Route: 065

REACTIONS (1)
  - Haematotoxicity [Unknown]
